FAERS Safety Report 5590571-4 (Version None)
Quarter: 2008Q1

REPORT INFORMATION
  Report Type: 
  Country: None (occurrence: None)
  Receive Date: 20080110
  Receipt Date: 20071227
  Transmission Date: 20080703
  Serious: Yes (Other)
  Sender: FDA-Public Use
  Company Number: 2007-06003

PATIENT
  Age: 63 Year
  Sex: Female

DRUGS (5)
  1. LOVASTATIN [Suspect]
     Indication: TYPE IIA HYPERLIPIDAEMIA
     Dosage: 100 MG, BID X 2 1/2 WEEKS, ORAL
     Route: 048
     Dates: start: 19850101, end: 19950101
  2. SPORANOX [Suspect]
     Indication: BODY TINEA
     Dosage: 100 MG, BID, X 2 1/2 WEEJS, ORAL
     Route: 048
     Dates: start: 19950301, end: 19950101
  3. NIACIN [Suspect]
     Indication: TYPE IIA HYPERLIPIDAEMIA
     Dosage: 3 G, DAILY, ORAL
     Route: 048
     Dates: start: 19850101, end: 19950101
  4. TIMOLOL MALEATE [Concomitant]
  5. ACETYLSALICYLIC ACID SRT [Concomitant]

REACTIONS (3)
  - HEPATOTOXICITY [None]
  - POTENTIATING DRUG INTERACTION [None]
  - RHABDOMYOLYSIS [None]
